FAERS Safety Report 16167498 (Version 1)
Quarter: 2019Q2

REPORT INFORMATION
  Report Type: Spontaneous
  Country: ES (occurrence: ES)
  Receive Date: 20190408
  Receipt Date: 20190408
  Transmission Date: 20190711
  Serious: Yes (Hospitalization, Other)
  Sender: FDA-Public Use
  Company Number: ES-ACCORD-119046

PATIENT
  Sex: Female

DRUGS (3)
  1. ARIPIRAZOLE TAD [Suspect]
     Active Substance: ARIPIPRAZOLE
     Indication: PRODUCT USED FOR UNKNOWN INDICATION
     Dosage: STRENGTH: 5 MG
     Dates: end: 20190206
  2. PARACETAMOL [Concomitant]
     Active Substance: ACETAMINOPHEN
  3. ARIPIPRAZOLE ACCORD [Suspect]
     Active Substance: ARIPIPRAZOLE
     Indication: PRODUCT USED FOR UNKNOWN INDICATION
     Dosage: STRENGTH: 5 MG
     Dates: end: 20190206

REACTIONS (2)
  - Respiratory failure [Unknown]
  - Interstitial lung disease [Unknown]

NARRATIVE: CASE EVENT DATE: 20190206
